FAERS Safety Report 4894938-9 (Version None)
Quarter: 2006Q1

REPORT INFORMATION
  Report Type: 
  Country: None (occurrence: None)
  Receive Date: 20060130
  Receipt Date: 20050412
  Transmission Date: 20060701
  Serious: Yes (Other)
  Sender: FDA-Public Use
  Company Number: US-BRISTOL-MYERS SQUIBB COMPANY-12929808

PATIENT
  Sex: Female
  Weight: 59 kg

DRUGS (1)
  1. GLUCOPHAGE [Suspect]
     Indication: INFERTILITY
     Route: 048
     Dates: end: 20050408

REACTIONS (5)
  - ABDOMINAL PAIN [None]
  - BLOOD LACTIC ACID INCREASED [None]
  - CONSTIPATION [None]
  - DIARRHOEA [None]
  - LOSS OF CONSCIOUSNESS [None]
